FAERS Safety Report 12116636 (Version 1)
Quarter: 2016Q1

REPORT INFORMATION
  Report Type: Report from Study
  Country: DE (occurrence: DE)
  Receive Date: 20160225
  Receipt Date: 20160225
  Transmission Date: 20160526
  Serious: Yes (Hospitalization)
  Sender: FDA-Public Use
  Company Number: DE-ABBVIE-16K-062-1564482-00

PATIENT
  Age: 23 Year
  Sex: Male

DRUGS (5)
  1. HUMIRA [Suspect]
     Active Substance: ADALIMUMAB
     Indication: CROHN^S DISEASE
     Route: 058
     Dates: start: 20150505, end: 201512
  2. METAMIZOLE [Concomitant]
     Active Substance: METAMIZOLE
     Indication: PRODUCT USED FOR UNKNOWN INDICATION
  3. PANTOZOL [Concomitant]
     Active Substance: PANTOPRAZOLE SODIUM
     Indication: PRODUCT USED FOR UNKNOWN INDICATION
  4. PARACETAMOL [Concomitant]
     Active Substance: ACETAMINOPHEN
     Indication: PRODUCT USED FOR UNKNOWN INDICATION
  5. TILIDINE [Concomitant]
     Active Substance: TILIDINE
     Indication: PRODUCT USED FOR UNKNOWN INDICATION

REACTIONS (14)
  - Peritonitis [Recovering/Resolving]
  - Ascites [Recovering/Resolving]
  - Abscess intestinal [Recovering/Resolving]
  - Impaired healing [Recovered/Resolved]
  - Postoperative wound complication [Unknown]
  - Generalised oedema [Recovering/Resolving]
  - Enteritis [Recovering/Resolving]
  - Colitis [Recovering/Resolving]
  - Lymphoid tissue hyperplasia [Recovering/Resolving]
  - Abdominal abscess [Recovered/Resolved]
  - Oedema [Recovering/Resolving]
  - Crohn^s disease [Recovering/Resolving]
  - Weight increased [Recovering/Resolving]
  - Protein deficiency [Recovering/Resolving]

NARRATIVE: CASE EVENT DATE: 201512
